FAERS Safety Report 22057844 (Version 1)
Quarter: 2023Q1

REPORT INFORMATION
  Report Type: Report from Study
  Country: US (occurrence: US)
  Receive Date: 20230303
  Receipt Date: 20230303
  Transmission Date: 20230418
  Serious: No
  Sender: FDA-Public Use
  Company Number: US-ORG100014127-2022001312

PATIENT
  Sex: Female

DRUGS (11)
  1. METOPIRONE [Suspect]
     Active Substance: METYRAPONE
     Indication: Pituitary-dependent Cushing^s syndrome
     Dates: start: 20220404
  2. SCOPOLAMINE [Concomitant]
     Active Substance: SCOPOLAMINE
     Indication: Product used for unknown indication
  3. APREPITANT [Concomitant]
     Active Substance: APREPITANT
     Indication: Product used for unknown indication
  4. Hyoscyamine 0.125 sl tabs [Concomitant]
     Indication: Product used for unknown indication
  5. Ondansetron 4g/ml [Concomitant]
     Indication: Product used for unknown indication
  6. Vitamin d 250000 [Concomitant]
     Indication: Product used for unknown indication
  7. Labetalol 200mg [Concomitant]
     Indication: Product used for unknown indication
  8. Ketoconazole 200mg [Concomitant]
     Indication: Product used for unknown indication
  9. Calcium 500 [Concomitant]
     Indication: Product used for unknown indication
  10. VITAMINS [Concomitant]
     Active Substance: VITAMINS
     Indication: Product used for unknown indication
  11. Potassium 99mg [Concomitant]
     Indication: Product used for unknown indication

REACTIONS (1)
  - Off label use [Not Recovered/Not Resolved]
